FAERS Safety Report 5905864-8 (Version None)
Quarter: 2008Q4

REPORT INFORMATION
  Report Type: 
  Country: None (occurrence: None)
  Receive Date: 20081001
  Receipt Date: 20081001
  Transmission Date: 20090506
  Serious: Yes (Death, Life-Threatening, Hospitalization)
  Sender: FDA-Public Use
  Company Number: None

PATIENT
  Age: 77 Year
  Sex: Male
  Weight: 65 kg

DRUGS (5)
  1. ACTIVASE [Suspect]
     Indication: ILIAC ARTERY OCCLUSION
     Dosage: 0.5-1 MG/HR CONTINUOUS IV
     Dates: start: 20080820, end: 20080821
  2. FENTANYL [Concomitant]
  3. HEPARIN [Concomitant]
  4. PHENYLEPHRINE [Concomitant]
  5. VECURONIUM BROMIDE [Concomitant]

REACTIONS (4)
  - HAEMORRHAGE INTRACRANIAL [None]
  - LEG AMPUTATION [None]
  - PERIPHERAL ISCHAEMIA [None]
  - POST PROCEDURAL COMPLICATION [None]
